FAERS Safety Report 5177056-4 (Version None)
Quarter: 2006Q4

REPORT INFORMATION
  Report Type: 
  Country: None (occurrence: None)
  Receive Date: 20061218
  Receipt Date: 20061205
  Transmission Date: 20070319
  Serious: Yes (Hospitalization)
  Sender: FDA-Public Use
  Company Number: FR-GLAXOSMITHKLINE-B0450202A

PATIENT
  Age: 5 Year
  Sex: Female
  Weight: 29.7 kg

DRUGS (3)
  1. LANVIS [Suspect]
     Indication: LYMPHOCYTIC LEUKAEMIA
     Route: 048
     Dates: start: 20060614, end: 20060627
  2. ENDOXAN [Concomitant]
     Indication: LYMPHOCYTIC LEUKAEMIA
     Route: 065
     Dates: start: 20060614, end: 20060614
  3. ARACYTINE [Concomitant]
     Indication: LYMPHOCYTIC LEUKAEMIA
     Route: 065
     Dates: start: 20060616, end: 20060626

REACTIONS (9)
  - ABDOMINAL DISTENSION [None]
  - ABDOMINAL PAIN UPPER [None]
  - ASCITES [None]
  - COAGULOPATHY [None]
  - HEPATOCELLULAR DAMAGE [None]
  - HEPATOMEGALY [None]
  - PORTAL HYPERTENSION [None]
  - VENOOCCLUSIVE LIVER DISEASE [None]
  - WEIGHT INCREASED [None]
